FAERS Safety Report 22185057 (Version 1)
Quarter: 2023Q2

REPORT INFORMATION
  Report Type: Spontaneous
  Country: US (occurrence: US)
  Receive Date: 20230407
  Receipt Date: 20230407
  Transmission Date: 20230722
  Serious: Yes (Other)
  Sender: FDA-Public Use
  Company Number: US-EXELIXIS-CABO-23062508

PATIENT

DRUGS (2)
  1. CABOMETYX [Suspect]
     Active Substance: CABOZANTINIB S-MALATE
     Indication: Clear cell renal cell carcinoma
     Dosage: 40 MG, QD
     Route: 048
  2. AVELUMAB [Suspect]
     Active Substance: AVELUMAB
     Indication: Clear cell renal cell carcinoma
     Dosage: 10 MG/KG, Q2WEEKS
     Route: 042

REACTIONS (4)
  - Fall [Unknown]
  - Hypoglycaemia [Unknown]
  - Pulmonary embolism [Unknown]
  - Rash maculo-papular [Unknown]
